FAERS Safety Report 8911478 (Version 1)
Quarter: 2012Q4

REPORT INFORMATION
  Report Type: 
  Country: CO (occurrence: CO)
  Receive Date: 20121116
  Receipt Date: 20121116
  Transmission Date: 20130627
  Serious: Yes (Other)
  Sender: FDA-Public Use
  Company Number: CO-AMGEN-COLSP2012037061

PATIENT
  Age: 47 Year
  Sex: Female

DRUGS (4)
  1. ENBREL [Suspect]
     Indication: RHEUMATOID ARTHRITIS
     Dosage: 50 mg, weekly
     Route: 058
     Dates: start: 201204
  2. METHOTREXATE [Concomitant]
     Dosage: 7.5 mg, weekly
     Route: 048
     Dates: start: 2008
  3. LEFLUNOMIDE [Concomitant]
     Dosage: UNK
     Dates: start: 2008
  4. HYDROCHLOROTHIAZIDE [Concomitant]
     Indication: RHEUMATOID ARTHRITIS
     Dosage: UNK
     Route: 048
     Dates: start: 2008

REACTIONS (3)
  - Skin discolouration [Not Recovered/Not Resolved]
  - Hypersensitivity [Recovered/Resolved]
  - Uterine disorder [Unknown]
